FAERS Safety Report 7921768-3 (Version None)
Quarter: 2011Q4

REPORT INFORMATION
  Report Type: 
  Country: None (occurrence: None)
  Receive Date: 20111117
  Receipt Date: 20111108
  Transmission Date: 20120403
  Serious: Yes (Hospitalization)
  Sender: FDA-Public Use
  Company Number: US-VIIV HEALTHCARE LIMITED-B0760108A

PATIENT
  Age: 47 Year
  Sex: Female
  Weight: 92.7 kg

DRUGS (12)
  1. DARUNAVIR ETHANOLATE [Concomitant]
     Indication: HIV INFECTION
     Dosage: 800MG PER DAY
     Dates: start: 20100525
  2. NIACIN [Concomitant]
     Route: 048
     Dates: start: 20100126
  3. PRILOSEC [Concomitant]
     Route: 048
     Dates: start: 20100831
  4. SUSTIVA [Concomitant]
     Indication: HIV INFECTION
     Dosage: 600MG AT NIGHT
     Dates: start: 20081030
  5. TRICOR [Concomitant]
     Indication: HYPERCHOLESTEROLAEMIA
     Route: 048
     Dates: start: 20101123
  6. PROAIR HFA [Concomitant]
     Indication: CHRONIC OBSTRUCTIVE PULMONARY DISEASE
     Route: 055
     Dates: start: 20101123
  7. LIPITOR [Concomitant]
     Route: 048
     Dates: start: 20110802
  8. LISINOPRIL AND HYDROCHLOROTHIAZIDE [Concomitant]
     Route: 048
     Dates: start: 20110802
  9. MARAVIROC [Suspect]
     Indication: HIV INFECTION
     Dosage: 150MG TWICE PER DAY
     Route: 048
     Dates: start: 20081216
  10. RITONAVIR [Concomitant]
     Indication: HIV INFECTION
     Dosage: 100MG PER DAY
     Dates: start: 20100525
  11. VITAMIN D [Concomitant]
     Route: 048
     Dates: start: 20100126
  12. CALCIUM [Concomitant]
     Indication: OSTEOPENIA
     Route: 048
     Dates: start: 20100831

REACTIONS (1)
  - ABDOMINAL SEPSIS [None]
